FAERS Safety Report 6609814-0 (Version None)
Quarter: 2010Q1

REPORT INFORMATION
  Report Type: 
  Country: None (occurrence: None)
  Receive Date: 20100216
  Receipt Date: 20090914
  Transmission Date: 20100710
  Serious: Yes (Hospitalization, Other)
  Sender: FDA-Public Use
  Company Number: MC200800268

PATIENT
  Age: 65 Year
  Sex: Male
  Weight: 78 kg

DRUGS (12)
  1. ANGIOMAX [Suspect]
     Indication: PERCUTANEOUS CORONARY INTERVENTION
     Dosage: 60 MG, SINGLE, INTRAVENOUS; SEE IMAGE
     Route: 042
     Dates: start: 20080606, end: 20080606
  2. ANGIOMAX [Suspect]
     Indication: PERCUTANEOUS CORONARY INTERVENTION
     Dosage: 60 MG, SINGLE, INTRAVENOUS; SEE IMAGE
     Route: 042
     Dates: start: 20080606, end: 20080606
  3. PLACEBO (PLACEBO) INJECTION [Suspect]
     Dosage: 5.8 ML, BOLUS, INTRAVENOUS; SEE IMAGE
     Route: 042
     Dates: start: 20080606, end: 20080606
  4. PLACEBO (PLACEBO) INJECTION [Suspect]
     Dosage: 5.8 ML, BOLUS, INTRAVENOUS; SEE IMAGE
     Route: 042
     Dates: start: 20080606, end: 20080606
  5. CLOPIDOGREL [Suspect]
     Dosage: 4 CAPSULES, SINGLE, ORAL; SEE IMAGE
     Route: 048
     Dates: start: 20080606, end: 20080606
  6. CLOPIDOGREL [Suspect]
     Dosage: 4 CAPSULES, SINGLE, ORAL; SEE IMAGE
     Route: 048
     Dates: start: 20080606, end: 20080606
  7. CLOPIDOGREL [Suspect]
  8. LOPRESSOR [Suspect]
     Indication: HYPERTENSION
     Dosage: 25 MG, BID, ORAL
     Route: 048
     Dates: start: 20080606, end: 20080606
  9. ASPIRIN [Concomitant]
  10. CLOPIDOGREL [Concomitant]
  11. INSULIN (INSULIN) [Concomitant]
  12. NOVOLIN N [Concomitant]

REACTIONS (2)
  - HYPOTENSION [None]
  - THROMBOCYTOPENIA [None]
